FAERS Safety Report 13653686 (Version 2)
Quarter: 2017Q3

REPORT INFORMATION
  Report Type: Spontaneous
  Country: FR (occurrence: FR)
  Receive Date: 20170614
  Receipt Date: 20170831
  Transmission Date: 20171127
  Serious: Yes (Other)
  Sender: FDA-Public Use
  Company Number: FR-BAYER-2017-110424

PATIENT
  Age: 39 Year
  Sex: Female

DRUGS (4)
  1. LITHIUM CITRATE. [Concomitant]
     Active Substance: LITHIUM CITRATE
     Dosage: 1.0 MG/2 ML
     Dates: start: 201704
  2. MIRENA [Suspect]
     Active Substance: LEVONORGESTREL
     Dosage: 20 MCG/24HR, CONT
     Route: 015
     Dates: start: 20130925, end: 20170522
  3. MAGNESIUM [Concomitant]
     Active Substance: MAGNESIUM
     Dosage: MORNING IN A VIAL
     Dates: start: 201704
  4. LEXOMIL [Concomitant]
     Active Substance: BROMAZEPAM
     Dosage: UNK
     Dates: start: 201704

REACTIONS (4)
  - Depression [Recovering/Resolving]
  - Fungal infection [Unknown]
  - Malaise [Not Recovered/Not Resolved]
  - Loss of libido [Recovering/Resolving]

NARRATIVE: CASE EVENT DATE: 201512
